FAERS Safety Report 10876785 (Version 1)
Quarter: 2015Q1

REPORT INFORMATION
  Report Type: Spontaneous
  Country: CH (occurrence: CH)
  Receive Date: 20150302
  Receipt Date: 20150302
  Transmission Date: 20150721
  Serious: Yes (Hospitalization, Other)
  Sender: FDA-Public Use
  Company Number: CH-009507513-1502CHE011899

PATIENT
  Age: 73 Year
  Sex: Female

DRUGS (1)
  1. REMERON [Suspect]
     Active Substance: MIRTAZAPINE
     Indication: SUICIDE ATTEMPT
     Dosage: 10 DOSAGE ONCE
     Route: 048
     Dates: start: 20140519, end: 20140519

REACTIONS (4)
  - Hypertension [Unknown]
  - Overdose [Unknown]
  - Disorientation [Unknown]
  - Suicide attempt [Recovered/Resolved]

NARRATIVE: CASE EVENT DATE: 20140519
